FAERS Safety Report 10792450 (Version 4)
Quarter: 2016Q3

REPORT INFORMATION
  Report Type: Report from Study
  Country: BR (occurrence: BR)
  Receive Date: 20150213
  Receipt Date: 20160802
  Transmission Date: 20161109
  Serious: Yes (Hospitalization)
  Sender: FDA-Public Use
  Company Number: BR-ABBVIE-15K-020-1343166-00

PATIENT
  Age: 37 Year
  Sex: Female
  Weight: 87 kg

DRUGS (5)
  1. AZATHIOPRINE. [Concomitant]
     Active Substance: AZATHIOPRINE
     Indication: CROHN^S DISEASE
     Route: 048
     Dates: start: 201406
  2. HUMIRA [Suspect]
     Active Substance: ADALIMUMAB
     Route: 058
  3. NEOVLAR [Concomitant]
     Indication: CONTRACEPTION
     Route: 048
     Dates: start: 2000
  4. HUMIRA [Suspect]
     Active Substance: ADALIMUMAB
     Indication: CROHN^S DISEASE
     Route: 058
     Dates: start: 20120101
  5. ALLEGRA [Suspect]
     Active Substance: FEXOFENADINE HYDROCHLORIDE
     Indication: PRODUCT USED FOR UNKNOWN INDICATION
     Dosage: USED ONLY ONCE
     Route: 048
     Dates: start: 201305, end: 201305

REACTIONS (25)
  - Drug hypersensitivity [Not Recovered/Not Resolved]
  - Drug dose omission [Recovered/Resolved]
  - Abdominal pain upper [Recovered/Resolved]
  - Contusion [Unknown]
  - Abdominal distension [Not Recovered/Not Resolved]
  - Somnolence [Recovered/Resolved]
  - Pyrexia [Unknown]
  - Wound [Not Recovered/Not Resolved]
  - Malaise [Recovered/Resolved]
  - Erythema [Unknown]
  - Weight decreased [Recovered/Resolved]
  - Somnolence [Recovered/Resolved]
  - Malaise [Not Recovered/Not Resolved]
  - Malaise [Recovered/Resolved]
  - Diarrhoea [Recovering/Resolving]
  - Burning sensation [Not Recovered/Not Resolved]
  - Paraesthesia [Not Recovered/Not Resolved]
  - Perfume sensitivity [Unknown]
  - Erythema [Not Recovered/Not Resolved]
  - Injection site pain [Recovered/Resolved]
  - Pruritus allergic [Not Recovered/Not Resolved]
  - Skin haemorrhage [Unknown]
  - Generalised erythema [Unknown]
  - Food allergy [Not Recovered/Not Resolved]
  - Fatigue [Recovered/Resolved]

NARRATIVE: CASE EVENT DATE: 20120101
